FAERS Safety Report 7328190-1 (Version None)
Quarter: 2011Q1

REPORT INFORMATION
  Report Type: 
  Country: None (occurrence: None)
  Receive Date: 20110303
  Receipt Date: 20110303
  Transmission Date: 20110831
  Serious: Yes (Hospitalization, Other)
  Sender: FDA-Public Use
  Company Number: PHHO2009CA01563

PATIENT
  Sex: Male
  Weight: 74.6 kg

DRUGS (9)
  1. PLACEBO [Suspect]
     Indication: CARCINOID TUMOUR
     Dosage: PLACEBO
     Route: 048
     Dates: start: 20080718, end: 20090127
  2. PROCTOSEDYL [Concomitant]
  3. HYDROCORTISONE [Concomitant]
  4. OXYCODONE [Concomitant]
  5. VITAMIN D [Concomitant]
  6. SANDOSTATIN LAR [Suspect]
     Dosage: UNK
  7. IBUPROFEN [Concomitant]
  8. PERCOCET [Concomitant]
  9. SANDOSTATIN LAR [Suspect]
     Indication: CARCINOID SYNDROME
     Dosage: UNK

REACTIONS (5)
  - GLIOBLASTOMA MULTIFORME [None]
  - GRAND MAL CONVULSION [None]
  - CRANIOTOMY [None]
  - CENTRAL NERVOUS SYSTEM LESION [None]
  - TUMOUR EXCISION [None]
